FAERS Safety Report 26167834 (Version 1)
Quarter: 2025Q4

REPORT INFORMATION
  Report Type: Spontaneous
  Country: AU (occurrence: AU)
  Receive Date: 20251217
  Receipt Date: 20251217
  Transmission Date: 20260117
  Serious: Yes (Other)
  Sender: BAUSCH AND LOMB
  Company Number: AU-BAUSCHBL-2025BNL033587

PATIENT
  Age: 32 Year
  Sex: Female

DRUGS (4)
  1. PREDNISOLONE [Suspect]
     Active Substance: PREDNISOLONE
     Indication: Product used for unknown indication
     Route: 065
  2. KINERET [Suspect]
     Active Substance: ANAKINRA
     Indication: Product used for unknown indication
     Route: 065
  3. ETOPOSIDE [Suspect]
     Active Substance: ETOPOSIDE
     Indication: Product used for unknown indication
     Route: 065
  4. METHYLPREDNISOLONE [Suspect]
     Active Substance: METHYLPREDNISOLONE
     Indication: Product used for unknown indication
     Route: 065

REACTIONS (9)
  - Pancytopenia [Unknown]
  - Disseminated intravascular coagulation [Unknown]
  - Abdominal pain [Unknown]
  - Blood lactate dehydrogenase increased [Unknown]
  - Diarrhoea [Unknown]
  - Pyrexia [Unknown]
  - Rash [Unknown]
  - Serum ferritin increased [Unknown]
  - Off label use [Unknown]
